FAERS Safety Report 17213368 (Version 1)
Quarter: 2019Q4

REPORT INFORMATION
  Report Type: Report from Study
  Country: IT (occurrence: IT)
  Receive Date: 20191230
  Receipt Date: 20191230
  Transmission Date: 20200122
  Serious: Yes (Life-Threatening)
  Sender: FDA-Public Use
  Company Number: IT-EMD SERONO-9137639

PATIENT
  Age: 59 Year
  Sex: Male

DRUGS (2)
  1. ONGLYZA [Concomitant]
     Active Substance: SAXAGLIPTIN HYDROCHLORIDE
     Indication: PRODUCT USED FOR UNKNOWN INDICATION
  2. GLUCOPHAGE [Suspect]
     Active Substance: METFORMIN HYDROCHLORIDE
     Indication: TYPE 2 DIABETES MELLITUS
     Route: 048

REACTIONS (6)
  - Toxicity to various agents [Recovered/Resolved]
  - Lactic acidosis [Recovered/Resolved]
  - Renal failure [Recovered/Resolved]
  - Sopor [Recovered/Resolved]
  - Dehydration [Recovered/Resolved]
  - Respiratory alkalosis [Recovered/Resolved]

NARRATIVE: CASE EVENT DATE: 20191211
